FAERS Safety Report 20559011 (Version 1)
Quarter: 2022Q1

REPORT INFORMATION
  Report Type: Spontaneous
  Country: ES (occurrence: ES)
  Receive Date: 20220307
  Receipt Date: 20220307
  Transmission Date: 20220423
  Serious: Yes (Death, Hospitalization)
  Sender: FDA-Public Use
  Company Number: None

PATIENT
  Age: 66 Year
  Sex: Female
  Weight: 60 kg

DRUGS (5)
  1. ALLOPURINOL [Suspect]
     Active Substance: ALLOPURINOL
     Indication: Hyperuricaemia
     Route: 048
     Dates: start: 20210831, end: 20210930
  2. CEFTRIAXONE [Suspect]
     Active Substance: CEFTRIAXONE
     Indication: Urinary tract infection
     Route: 042
     Dates: start: 20210927, end: 20210930
  3. ENOXAPARIN SODIUM [Concomitant]
     Active Substance: ENOXAPARIN SODIUM
     Indication: Thrombophlebitis
     Dosage: 60MG, ONCE A DAY, 6,000 IU (60 MG)/ 0.6 ML SOLUTION FOR INJECTION IN PRE-FILLED SYRINGE
     Route: 058
     Dates: start: 20210823, end: 20210929
  4. OMEPRAZOLE [Concomitant]
     Active Substance: OMEPRAZOLE
     Dosage: 20 MG GASTRO-RESISTANT HARD CAPSULES EFG, 14 CAPSULES, 20 MG, 2 TIMES A DAY?20 MG, 2 TIMES A DAY
     Route: 042
     Dates: start: 20210914, end: 20210927
  5. METOCLOPRAMIDE [Concomitant]
     Active Substance: METOCLOPRAMIDE
     Indication: Vomiting
     Dosage: 1 MG/ML ORAL SOLUTION EFG, 1 VIAL OF 250 ML
     Route: 048
     Dates: start: 20210914, end: 20210927

REACTIONS (1)
  - Toxic epidermal necrolysis [Fatal]

NARRATIVE: CASE EVENT DATE: 20210930
